FAERS Safety Report 6763201-3 (Version None)
Quarter: 2010Q2

REPORT INFORMATION
  Report Type: 
  Country: None (occurrence: None)
  Receive Date: 20100609
  Receipt Date: 20100525
  Transmission Date: 20101027
  Serious: Yes (Hospitalization)
  Sender: FDA-Public Use
  Company Number: DE-GENENTECH-301658

PATIENT
  Age: 68 Year
  Sex: Female
  Weight: 77 kg

DRUGS (17)
  1. MABTHERA [Suspect]
     Indication: RHEUMATOID ARTHRITIS
     Dosage: 1000 MG, UNK
     Route: 042
     Dates: start: 20100126
  2. PREDNISOLONE [Concomitant]
     Indication: RHEUMATOID ARTHRITIS
     Dosage: 10 MG, QD
     Route: 048
     Dates: start: 20041101
  3. PREDNISOLONE [Concomitant]
     Dosage: 5 MG, QD
     Route: 048
  4. PANTOZOL [Concomitant]
     Indication: GASTRITIS
     Dosage: 40 MG, QAM
     Route: 048
  5. DURAGESIC-100 [Concomitant]
     Indication: PAIN
     Dosage: 150 A?G, Q3D
     Route: 062
  6. LYRICA [Concomitant]
     Indication: PAIN
     Dosage: 150 MG, TID
     Route: 048
  7. DICLOFENAC [Concomitant]
     Indication: PAIN
     Dosage: 100 MG, QAM
     Route: 048
  8. DICLOFENAC [Concomitant]
     Dosage: 50 MG, BID
     Route: 048
  9. METFORMIN [Concomitant]
     Indication: DIABETES MELLITUS
     Dosage: 850 MG, TID
     Route: 048
  10. JANUVIA [Concomitant]
     Indication: DIABETES MELLITUS
     Dosage: 100 MG, QD
     Route: 065
  11. CYMBALTA [Concomitant]
     Indication: URINARY INCONTINENCE
     Dosage: 120 MG, QD
     Route: 065
  12. METOPROLOL TARTRATE [Concomitant]
     Indication: HYPERTENSION
     Dosage: 95 MG, QD
     Route: 048
  13. FERROUS GLYCINE SULFATE [Concomitant]
     Indication: ANAEMIA
     Dosage: UNK
     Route: 065
  14. ACETYLSALICYLIC ACID [Concomitant]
     Indication: DRUG USE FOR UNKNOWN INDICATION
     Dosage: 100 MG, QD
     Route: 065
  15. TORASEMIDE [Concomitant]
     Indication: DRUG USE FOR UNKNOWN INDICATION
     Dosage: UNK
     Route: 065
  16. CALCIUM NOS [Concomitant]
     Indication: DRUG USE FOR UNKNOWN INDICATION
     Route: 065
  17. VITAMIN D [Concomitant]
     Indication: DRUG USE FOR UNKNOWN INDICATION
     Route: 065

REACTIONS (4)
  - CEREBROVASCULAR ACCIDENT [None]
  - CRANIAL NERVE INFECTION [None]
  - ENCEPHALITIS BRAIN STEM [None]
  - VIRAL INFECTION [None]
